FAERS Safety Report 5276305-1 (Version None)
Quarter: 2007Q1

REPORT INFORMATION
  Report Type: 
  Country: None (occurrence: None)
  Receive Date: 20070326
  Receipt Date: 20070314
  Transmission Date: 20070707
  Serious: Yes (Hospitalization, Other)
  Sender: FDA-Public Use
  Company Number: US-PFIZER INC-2007019856

PATIENT
  Sex: Female
  Weight: 73 kg

DRUGS (9)
  1. CHANTIX [Suspect]
     Indication: EX-SMOKER
  2. MORPHINE [Suspect]
     Dates: start: 20070201, end: 20070201
  3. VALSARTAN [Concomitant]
  4. NORVASC [Concomitant]
  5. PLAVIX [Concomitant]
  6. ZOCOR [Concomitant]
  7. TOPROL-XL [Concomitant]
  8. ACETYLSALICYLIC ACID SRT [Concomitant]
  9. PROTONIX [Concomitant]

REACTIONS (2)
  - AORTIC SURGERY [None]
  - NIGHTMARE [None]
